FAERS Safety Report 6856096-0 (Version None)
Quarter: 2010Q3

REPORT INFORMATION
  Report Type: 
  Country: None (occurrence: None)
  Receive Date: 20100715
  Receipt Date: 20100715
  Transmission Date: 20110219
  Serious: Yes (Life-Threatening)
  Sender: FDA-Public Use
  Company Number: None

PATIENT
  Age: 63 Year
  Sex: Female

DRUGS (1)
  1. PHYTONADIONE [Suspect]
     Indication: PREOPERATIVE CARE
     Dosage: 10 MT OT IV
     Route: 042
     Dates: start: 20100709, end: 20100709

REACTIONS (2)
  - DYSPNOEA [None]
  - INTERNATIONAL NORMALISED RATIO INCREASED [None]
